FAERS Safety Report 16864300 (Version 1)
Quarter: 2019Q3

REPORT INFORMATION
  Report Type: Spontaneous
  Country: CN (occurrence: CN)
  Receive Date: 20190927
  Receipt Date: 20190927
  Transmission Date: 20191005
  Serious: Yes (Death, Hospitalization)
  Sender: FDA-Public Use
  Company Number: ALC2019CN000862

PATIENT
  Age: 20 Year
  Sex: Male

DRUGS (2)
  1. FLUORESCITE [Suspect]
     Active Substance: FLUORESCEIN SODIUM
     Dosage: 4.9 UNK
     Route: 042
     Dates: start: 20190815, end: 20190815
  2. FLUORESCITE [Suspect]
     Active Substance: FLUORESCEIN SODIUM
     Indication: SKIN TEST
     Dosage: 0.1 ML
     Route: 065
     Dates: start: 20190815, end: 20190815

REACTIONS (1)
  - Anaphylactic shock [Fatal]

NARRATIVE: CASE EVENT DATE: 20190815
